FAERS Safety Report 15716925 (Version 1)
Quarter: 2018Q4

REPORT INFORMATION
  Report Type: Report from Study
  Country: FR (occurrence: FR)
  Receive Date: 20181213
  Receipt Date: 20181213
  Transmission Date: 20190205
  Serious: Yes (Life-Threatening, Hospitalization, Other)
  Sender: FDA-Public Use
  Company Number: FR-JAZZ-2018-FR-017697

PATIENT

DRUGS (11)
  1. VANCOMYCIN [Suspect]
     Active Substance: VANCOMYCIN
     Indication: SEPSIS
     Dosage: 3 G, QD
     Route: 042
     Dates: start: 20180918, end: 20180929
  2. INSULIN [Concomitant]
     Active Substance: INSULIN NOS
     Indication: DIABETES MELLITUS
     Dosage: UNK, QD
     Route: 042
     Dates: start: 20180921
  3. MIANSERINE [Concomitant]
     Active Substance: MIANSERIN HYDROCHLORIDE
     Indication: PRODUCT USED FOR UNKNOWN INDICATION
     Dosage: 10 MG, QD
     Route: 048
     Dates: start: 20181003
  4. HEPARIN [Concomitant]
     Active Substance: HEPARIN SODIUM
     Indication: BLOOD THROMBIN
     Dosage: 37500 IU, QD
     Route: 042
     Dates: start: 20180929
  5. CANCIDAS [Concomitant]
     Active Substance: CASPOFUNGIN ACETATE
     Indication: SEPSIS
     Dosage: 70 MG, QD
     Route: 042
     Dates: start: 20180924, end: 20181008
  6. ZOVIRAX [Concomitant]
     Active Substance: ACYCLOVIR
     Indication: SEPSIS
     Dosage: 1500 MG, QD
     Route: 042
     Dates: start: 20180914
  7. ALDACTONE [Concomitant]
     Active Substance: SPIRONOLACTONE
     Indication: PULMONARY OEDEMA
     Dosage: 150 MG, QD
     Route: 042
     Dates: start: 20180927
  8. AXEPIM [Concomitant]
     Active Substance: CEFEPIME HYDROCHLORIDE
     Indication: SEPSIS
     Dosage: 6 G, QD
     Route: 042
     Dates: start: 20180930, end: 20181009
  9. VYXEOS [Suspect]
     Active Substance: CYTARABINE\DAUNORUBICIN
     Indication: ACUTE MYELOID LEUKAEMIA
     Dosage: 44 MG/M2, D1 D3 D5
     Route: 042
     Dates: start: 20180914
  10. ZYVOXID [Concomitant]
     Active Substance: LINEZOLID
     Indication: SEPSIS
     Dosage: 1200 MG, QD
     Route: 042
     Dates: start: 20180929, end: 20181008
  11. FUROSEMIDE. [Concomitant]
     Active Substance: FUROSEMIDE
     Indication: PULMONARY OEDEMA
     Dosage: 250 MG, QD
     Route: 042
     Dates: start: 20180924

REACTIONS (5)
  - Drug reaction with eosinophilia and systemic symptoms [Recovering/Resolving]
  - Deep vein thrombosis [Recovering/Resolving]
  - Acute pulmonary oedema [Recovering/Resolving]
  - Febrile bone marrow aplasia [Recovering/Resolving]
  - Alopecia [Unknown]

NARRATIVE: CASE EVENT DATE: 20181004
